FAERS Safety Report 9828454 (Version 2)
Quarter: 2014Q2

REPORT INFORMATION
  Report Type: Not Available
  Country: SE (occurrence: SE)
  Receive Date: 20140117
  Receipt Date: 20140401
  Transmission Date: 20141212
  Serious: Yes (Hospitalization)
  Sender: FDA-Public Use
  Company Number: SE-IAC JAPAN XML-GBR-2014-0016863

PATIENT
  Age: 91 Year
  Sex: Female

DRUGS (2)
  1. NORSPAN [Suspect]
     Indication: CHEST PAIN
     Dosage: UNK
     Route: 062
     Dates: start: 201310, end: 20131030
  2. WARAN [Concomitant]
     Indication: ATRIAL FIBRILLATION

REACTIONS (3)
  - Delusion [Unknown]
  - Confusional state [Recovering/Resolving]
  - Hallucination [Unknown]
